FAERS Safety Report 4737316-5 (Version None)
Quarter: 2005Q3

REPORT INFORMATION
  Report Type: 
  Country: None (occurrence: None)
  Receive Date: 20050808
  Receipt Date: 20050805
  Transmission Date: 20060218
  Serious: Yes (Death, Hospitalization)
  Sender: FDA-Public Use
  Company Number: PHHO2005DE12349

PATIENT
  Age: 47 Year
  Sex: Female

DRUGS (22)
  1. CYCLOSPORINE [Suspect]
     Indication: LUNG TRANSPLANT
     Route: 048
     Dates: start: 20050709
  2. DACLIZUMAB [Suspect]
     Indication: LUNG TRANSPLANT
     Dosage: 1 MG/KG
     Route: 042
     Dates: start: 20050707
  3. MYCOPHENOLATE MOFETIL [Suspect]
     Indication: LUNG TRANSPLANT
     Dosage: 2000 MG
     Route: 042
     Dates: start: 20050709
  4. PREDNISOLONE [Suspect]
     Indication: LUNG TRANSPLANT
     Dosage: 20 MG/DAY
     Route: 042
     Dates: start: 20050709
  5. FLOXACILLIN [Concomitant]
  6. RANITIDINE [Concomitant]
  7. AMPHO MORONAL [Concomitant]
  8. ALBUTEROL SULFATE HFA [Concomitant]
  9. ITRACONAZOLE [Concomitant]
  10. CEFEPIME [Concomitant]
  11. ACC [Concomitant]
  12. METOCLOPRAMIDE [Concomitant]
  13. NEOSTIGMINE [Concomitant]
  14. FUROSEMIDE [Concomitant]
  15. URAPIDIL [Concomitant]
  16. PARACETAMOL [Concomitant]
  17. FENTANYL [Concomitant]
  18. K CL TAB [Concomitant]
  19. INSULIN [Concomitant]
  20. METOPROLOL [Concomitant]
  21. HEPARIN [Concomitant]
  22. SOTALOL HCL [Concomitant]

REACTIONS (6)
  - C-REACTIVE PROTEIN INCREASED [None]
  - MULTI-ORGAN FAILURE [None]
  - RENAL FAILURE ACUTE [None]
  - RESPIRATORY FAILURE [None]
  - SEPSIS [None]
  - WHITE BLOOD CELL COUNT INCREASED [None]
